FAERS Safety Report 15099318 (Version 1)
Quarter: 2018Q3

REPORT INFORMATION
  Report Type: Report from Study
  Country: US (occurrence: US)
  Receive Date: 20180702
  Receipt Date: 20180702
  Transmission Date: 20181010
  Serious: Yes (Other)
  Sender: FDA-Public Use
  Company Number: US-SHIRE-US201822735

PATIENT
  Sex: Female

DRUGS (1)
  1. HUMAN NORMAL IMMUNOGLOBULIN; LIQUID [Suspect]
     Active Substance: HUMAN IMMUNOGLOBULIN G
     Indication: PRIMARY IMMUNODEFICIENCY SYNDROME
     Dosage: 40 G, ONLY RECV^D 20 GRAMS, UNK
     Route: 042

REACTIONS (4)
  - Urinary tract infection [Not Recovered/Not Resolved]
  - Gastric disorder [Not Recovered/Not Resolved]
  - Incorrect dose administered [Unknown]
  - Ill-defined disorder [Unknown]
